FAERS Safety Report 24223319 (Version 1)
Quarter: 2024Q3

REPORT INFORMATION
  Report Type: Spontaneous
  Country: US (occurrence: US)
  Receive Date: 20240819
  Receipt Date: 20240819
  Transmission Date: 20241017
  Serious: No
  Sender: ANI
  Company Number: US-ANIPHARMA-2024-US-038033

PATIENT
  Age: 61 Year
  Sex: Female

DRUGS (2)
  1. ANASTROZOLE [Suspect]
     Active Substance: ANASTROZOLE
     Indication: Product used for unknown indication
  2. LYNPARZA [Suspect]
     Active Substance: OLAPARIB
     Dosage: TWO TIMES A DAY

REACTIONS (4)
  - Abdominal distension [Unknown]
  - Weight increased [Unknown]
  - Hot flush [Unknown]
  - Abdominal operation [Unknown]

NARRATIVE: CASE EVENT DATE: 20240701
